FAERS Safety Report 21689890 (Version 1)
Quarter: 2022Q4

REPORT INFORMATION
  Report Type: Spontaneous
  Country: US (occurrence: None)
  Receive Date: 20221205
  Receipt Date: 20221205
  Transmission Date: 20230113
  Serious: Yes (Hospitalization)
  Sender: FDA-Public Use
  Company Number: None

PATIENT
  Age: 74 Year
  Sex: Female

DRUGS (1)
  1. HYALURONIC ACID [Suspect]
     Active Substance: HYALURONIC ACID
     Route: 014
     Dates: start: 201906

REACTIONS (3)
  - Muscular weakness [None]
  - Transient ischaemic attack [None]
  - Neuropathy peripheral [None]

NARRATIVE: CASE EVENT DATE: 20221205
